FAERS Safety Report 25367675 (Version 1)
Quarter: 2025Q2

REPORT INFORMATION
  Report Type: Spontaneous
  Country: US (occurrence: US)
  Receive Date: 20250528
  Receipt Date: 20250528
  Transmission Date: 20250716
  Serious: Yes (Death, Other)
  Sender: Unknown Manufacturer
  Company Number: US-862174955-ML2025-02547

PATIENT
  Age: 37 Year
  Sex: Female

DRUGS (3)
  1. APIXABAN [Suspect]
     Active Substance: APIXABAN
     Indication: Aortic thrombosis
     Route: 048
  2. CLOPIDOGREL [Concomitant]
     Active Substance: CLOPIDOGREL BISULFATE
     Indication: Aortic thrombosis
  3. ATORVASTATIN [Concomitant]
     Active Substance: ATORVASTATIN
     Indication: Aortic thrombosis

REACTIONS (6)
  - Multiple organ dysfunction syndrome [Fatal]
  - Cardiomyopathy [Unknown]
  - Disseminated intravascular coagulation [Unknown]
  - Lactic acidosis [Unknown]
  - Treatment failure [Unknown]
  - Hypotension [Unknown]
